FAERS Safety Report 8541258 (Version 2)
Quarter: 2012Q4

REPORT INFORMATION
  Report Type: 
  Country: US (occurrence: US)
  Receive Date: 20120502
  Receipt Date: 20121212
  Transmission Date: 20130627
  Serious: Yes (Other)
  Sender: FDA-Public Use
  Company Number: US-ROCHE-1061665

PATIENT
  Sex: Female
  Weight: 74.91 kg

DRUGS (4)
  1. ACCUTANE [Suspect]
     Indication: ACNE
     Route: 065
     Dates: start: 198201, end: 198512
  2. WITCH HAZEL [Concomitant]
     Route: 065
  3. BENZOYL PEROXIDE [Concomitant]
     Route: 065
  4. CORTISONE [Concomitant]
     Route: 065

REACTIONS (5)
  - Colitis ulcerative [Unknown]
  - Inflammatory bowel disease [Unknown]
  - Depression [Not Recovered/Not Resolved]
  - Injury [Unknown]
  - Large intestine polyp [Unknown]
